FAERS Safety Report 23754282 (Version 3)
Quarter: 2024Q3

REPORT INFORMATION
  Report Type: Spontaneous
  Country: US (occurrence: US)
  Receive Date: 20240418
  Receipt Date: 20240927
  Transmission Date: 20241017
  Serious: Yes (Other)
  Sender: SANOFI AVENTIS
  Company Number: US-SA-SAC20240412000184

PATIENT
  Age: 64 Year
  Sex: Female

DRUGS (1)
  1. DUPIXENT [Suspect]
     Active Substance: DUPILUMAB
     Indication: Dermatitis atopic
     Dosage: 300 MG, QOW
     Route: 058
     Dates: start: 202401, end: 20240917

REACTIONS (11)
  - Cutaneous T-cell lymphoma [Unknown]
  - Vision blurred [Unknown]
  - Abdominal discomfort [Unknown]
  - Diarrhoea [Unknown]
  - Respiratory tract infection [Unknown]
  - Skin irritation [Unknown]
  - Dermatitis atopic [Unknown]
  - Rash macular [Unknown]
  - Skin exfoliation [Unknown]
  - Dry skin [Unknown]
  - Eye irritation [Unknown]

NARRATIVE: CASE EVENT DATE: 20240101
